FAERS Safety Report 10603277 (Version 2)
Quarter: 2014Q4

REPORT INFORMATION
  Report Type: Spontaneous
  Country: DE (occurrence: DE)
  Receive Date: 20141124
  Receipt Date: 20141126
  Transmission Date: 20150529
  Serious: Yes (Death, Other)
  Sender: FDA-Public Use
  Company Number: DE-BAUSCH-BL-2014-008841

PATIENT
  Sex: Male
  Weight: 1.8 kg

DRUGS (6)
  1. GLUCOSE [Concomitant]
     Active Substance: DEXTROSE
     Indication: PRODUCT USED FOR UNKNOWN INDICATION
     Dates: start: 20141103, end: 20141107
  2. INSULIN [Concomitant]
     Active Substance: INSULIN NOS
     Indication: PRODUCT USED FOR UNKNOWN INDICATION
     Dates: start: 20141103, end: 20141107
  3. AMMONUL [Suspect]
     Active Substance: SODIUM BENZOATE\SODIUM PHENYLACETATE
     Indication: HYPERAMMONAEMIA
     Dosage: 400 H
     Dates: start: 20141103
  4. CARNITHIN [Suspect]
     Active Substance: DIETARY SUPPLEMENT
     Indication: PRODUCT USED FOR UNKNOWN INDICATION
     Dates: start: 20141103, end: 20141107
  5. ELECTROLYTES [Concomitant]
     Active Substance: ELECTROLYTES NOS
     Indication: PRODUCT USED FOR UNKNOWN INDICATION
     Dates: start: 20141103, end: 20141107
  6. L-ARGININE [Concomitant]
     Active Substance: ARGININE
     Indication: PRODUCT USED FOR UNKNOWN INDICATION
     Dates: start: 20141103, end: 20141107

REACTIONS (3)
  - Hyperammonaemic crisis [Unknown]
  - Brain oedema [Fatal]
  - Dialysis [None]
